FAERS Safety Report 14490312 (Version 1)
Quarter: 2018Q1

REPORT INFORMATION
  Report Type: Report from Study
  Country: US (occurrence: US)
  Receive Date: 20180206
  Receipt Date: 20180206
  Transmission Date: 20180509
  Serious: Yes (Death, Hospitalization, Other)
  Sender: FDA-Public Use
  Company Number: US-GILEAD-2017-0305352

PATIENT
  Age: 74 Year
  Sex: Female

DRUGS (2)
  1. ADCIRCA [Concomitant]
     Active Substance: TADALAFIL
     Indication: PRODUCT USED FOR UNKNOWN INDICATION
     Route: 065
  2. AMBRISENTAN [Suspect]
     Active Substance: AMBRISENTAN
     Indication: PRODUCT USED FOR UNKNOWN INDICATION
     Dosage: 5 MG, UNK
     Route: 065
     Dates: start: 201709

REACTIONS (5)
  - Vomiting [Unknown]
  - Nasopharyngitis [Unknown]
  - Product use issue [Not Recovered/Not Resolved]
  - Death [Fatal]
  - Influenza [Recovered/Resolved]

NARRATIVE: CASE EVENT DATE: 20180128
